FAERS Safety Report 8664367 (Version 3)
Quarter: 2014Q1

REPORT INFORMATION
  Report Type: Spontaneous
  Country: FR (occurrence: FR)
  Receive Date: 20120713
  Receipt Date: 20140204
  Transmission Date: 20141002
  Serious: Yes (Other)
  Sender: FDA-Public Use
  Company Number: PHHY2012FR041322

PATIENT
  Age: 42 Year
  Sex: Female
  Weight: 68 kg

DRUGS (2)
  1. GILENYA [Suspect]
     Indication: MULTIPLE SCLEROSIS
     Dosage: 0.5 MG, QD
     Route: 048
     Dates: start: 20120419, end: 20120502
  2. GILENYA [Suspect]
     Dosage: UNK UKN, UNK
     Route: 048
     Dates: start: 201206

REACTIONS (5)
  - Colitis [Unknown]
  - Diarrhoea haemorrhagic [Recovered/Resolved]
  - C-reactive protein increased [Unknown]
  - Hyperthermia [Unknown]
  - Transaminases increased [Unknown]
